FAERS Safety Report 4898433-2 (Version None)
Quarter: 2006Q1

REPORT INFORMATION
  Report Type: 
  Country: None (occurrence: None)
  Receive Date: 20060117
  Receipt Date: 20060117
  Transmission Date: 20060701
  Serious: Yes (Hospitalization, Other)
  Sender: FDA-Public Use
  Company Number: None

PATIENT
  Age: 26 Year
  Sex: Female
  Weight: 68.0396 kg

DRUGS (2)
  1. ORAGEL ADVANCED TOOTH DESENSITIZER 3-.034 FL OZ PACKETS [Suspect]
     Indication: SENSITIVITY OF TEETH
     Dosage: 1 PACKAGE EVERY 2-4 WKS DENTAL
     Route: 004
     Dates: start: 20051201, end: 20060110
  2. ORAGEL ADVANCED TOOTH DESENSITIZER 3-.034 FL OZ PACKETS [Suspect]
     Indication: TOOTH FRACTURE
     Dosage: 1 PACKAGE EVERY 2-4 WKS DENTAL
     Route: 004
     Dates: start: 20051201, end: 20060110

REACTIONS (7)
  - DRUG HYPERSENSITIVITY [None]
  - GINGIVAL PAIN [None]
  - GINGIVAL PRURITUS [None]
  - ORAL MUCOSAL DISCOLOURATION [None]
  - ORAL MUCOSAL EXFOLIATION [None]
  - ORAL PAIN [None]
  - SKIN STRIAE [None]
